FAERS Safety Report 18382965 (Version 4)
Quarter: 2020Q4

REPORT INFORMATION
  Report Type: Spontaneous
  Country: US (occurrence: US)
  Receive Date: 20201014
  Receipt Date: 20201223
  Transmission Date: 20210114
  Serious: Yes (Hospitalization, Other)
  Sender: FDA-Public Use
  Company Number: US-JNJFOC-20201011960

PATIENT
  Age: 6 Decade
  Sex: Female
  Weight: 95.34 kg

DRUGS (3)
  1. HALDOL DECANOATE [Suspect]
     Active Substance: HALOPERIDOL DECANOATE
     Route: 030
     Dates: start: 2018
  2. HALDOL DECANOATE [Suspect]
     Active Substance: HALOPERIDOL DECANOATE
     Indication: PRODUCT USED FOR UNKNOWN INDICATION
     Route: 030
     Dates: start: 2007, end: 2018
  3. ATIVAN [Concomitant]
     Active Substance: LORAZEPAM
     Indication: PRODUCT USED FOR UNKNOWN INDICATION

REACTIONS (18)
  - Alopecia [Unknown]
  - Visual impairment [Unknown]
  - Hypertension [Unknown]
  - Intentional product misuse [Unknown]
  - Respiratory disorder [Unknown]
  - Cushing^s syndrome [Unknown]
  - Restless legs syndrome [Unknown]
  - Myocardial infarction [Unknown]
  - Lipoma [Unknown]
  - Metabolic disorder [Unknown]
  - Obesity [Unknown]
  - Spinal disorder [Unknown]
  - Dystonia [Unknown]
  - Tardive dyskinesia [Unknown]
  - Renal disorder [Unknown]
  - Ear pain [Unknown]
  - Pain [Unknown]
  - Heart rate irregular [Unknown]

NARRATIVE: CASE EVENT DATE: 2007
